FAERS Safety Report 9461437 (Version 1)
Quarter: 2013Q3

REPORT INFORMATION
  Report Type: Report from Study
  Country: US (occurrence: US)
  Receive Date: 20130816
  Receipt Date: 20130816
  Transmission Date: 20140515
  Serious: Yes (Death)
  Sender: FDA-Public Use
  Company Number: PHEH2013US017254

PATIENT
  Age: 77 Year
  Sex: Female

DRUGS (2)
  1. TASIGNA [Suspect]
     Indication: LUNG NEOPLASM MALIGNANT
     Dosage: 400 MG, Q12H
     Route: 048
     Dates: start: 20120224
  2. TASIGNA [Suspect]
     Indication: OFF LABEL USE

REACTIONS (1)
  - Death [Fatal]
